FAERS Safety Report 4715633-2 (Version None)
Quarter: 2005Q3

REPORT INFORMATION
  Report Type: 
  Country: None (occurrence: None)
  Receive Date: 20050715
  Receipt Date: 20050715
  Transmission Date: 20060218
  Serious: Yes (Life-Threatening)
  Sender: FDA-Public Use
  Company Number: None

PATIENT
  Age: 42 Year
  Sex: Male

DRUGS (6)
  1. TRIZIVIR [Suspect]
     Indication: ACQUIRED IMMUNODEFICIENCY SYNDROME
     Dosage: 1 TABLET TWICE DAILY ORAL
     Route: 048
     Dates: start: 20041101, end: 20050601
  2. TRIZIVIR [Suspect]
     Indication: HIV INFECTION
     Dosage: 1 TABLET TWICE DAILY ORAL
     Route: 048
     Dates: start: 20041101, end: 20050601
  3. TRIZIVIR [Suspect]
     Indication: ACQUIRED IMMUNODEFICIENCY SYNDROME
     Dosage: 1 TABLET TWICE DAILY ORAL
     Route: 048
     Dates: start: 20050612, end: 20050613
  4. TRIZIVIR [Suspect]
     Indication: HIV INFECTION
     Dosage: 1 TABLET TWICE DAILY ORAL
     Route: 048
     Dates: start: 20050612, end: 20050613
  5. LOPINAVIR/RITONAVIR [Concomitant]
  6. BACTRIM [Concomitant]

REACTIONS (4)
  - DIARRHOEA [None]
  - DRUG HYPERSENSITIVITY [None]
  - HYPOTENSION [None]
  - PYREXIA [None]
